FAERS Safety Report 13116711 (Version 3)
Quarter: 2025Q3

REPORT INFORMATION
  Report Type: Spontaneous
  Country: JP (occurrence: JP)
  Receive Date: 20170116
  Receipt Date: 20250701
  Transmission Date: 20251020
  Serious: Yes (Hospitalization)
  Sender: ABBVIE
  Company Number: JP-ABBVIE-16K-087-1812807-00

PATIENT
  Age: 42 Year
  Sex: Female

DRUGS (2)
  1. HUMIRA [Suspect]
     Active Substance: ADALIMUMAB
     Indication: Psoriasis
     Route: 058
     Dates: start: 2011, end: 2011
  2. HUMIRA [Suspect]
     Active Substance: ADALIMUMAB
     Route: 058
     Dates: start: 2012, end: 2012

REACTIONS (11)
  - Scleroderma-like reaction [Recovered/Resolved with Sequelae]
  - Lymphadenopathy [Unknown]
  - Pigmentation disorder [Unknown]
  - Scleroderma [Unknown]
  - Lichen planus [Unknown]
  - Systemic scleroderma [Unknown]
  - Lymphocytic infiltration [Unknown]
  - Vitiligo [Unknown]
  - Corneal disorder [Recovering/Resolving]
  - Erythema [Unknown]
  - Neutrophil count decreased [Recovering/Resolving]

NARRATIVE: CASE EVENT DATE: 20110301
